FAERS Safety Report 20517738 (Version 1)
Quarter: 2022Q1

REPORT INFORMATION
  Report Type: Spontaneous
  Country: BE (occurrence: BE)
  Receive Date: 20220225
  Receipt Date: 20220225
  Transmission Date: 20220423
  Serious: Yes (Hospitalization, Other)
  Sender: FDA-Public Use
  Company Number: BE-PFIZER INC-202200270628

PATIENT
  Age: 18 Year
  Sex: Male

DRUGS (2)
  1. KETAMINE HYDROCHLORIDE [Suspect]
     Active Substance: KETAMINE HYDROCHLORIDE
     Dosage: 7 G, WEEKLY
     Dates: start: 202002
  2. KETAMINE HYDROCHLORIDE [Suspect]
     Active Substance: KETAMINE HYDROCHLORIDE
     Dosage: 20-30 G
     Dates: start: 2020

REACTIONS (10)
  - Drug abuse [Unknown]
  - Acute kidney injury [Recovered/Resolved]
  - Hydronephrosis [Recovered/Resolved]
  - Hydronephrosis [Recovered/Resolved]
  - Cystitis ulcerative [Recovered/Resolved]
  - Lower urinary tract symptoms [Recovered/Resolved]
  - Urinary tract disorder [Recovered/Resolved]
  - Pyuria [Recovered/Resolved]
  - Haematuria [Recovered/Resolved]
  - Urinary incontinence [Recovered/Resolved]

NARRATIVE: CASE EVENT DATE: 20200201
